FAERS Safety Report 5908421-2 (Version None)
Quarter: 2008Q3

REPORT INFORMATION
  Report Type: 
  Country: None (occurrence: None)
  Receive Date: 20080930
  Receipt Date: 20080923
  Transmission Date: 20090109
  Serious: Yes (Hospitalization)
  Sender: FDA-Public Use
  Company Number: CERZ-1000368

PATIENT
  Age: 58 Year
  Sex: Female

DRUGS (1)
  1. CEREZYME [Suspect]
     Indication: GAUCHER'S DISEASE
     Dosage: 4000 U, Q2W, INTRAVENOUS, 60 U/KG, Q2W; INTRAVENOUS
     Route: 042
     Dates: start: 20051001

REACTIONS (3)
  - CHOLELITHIASIS [None]
  - HEPATIC FAILURE [None]
  - RENAL FAILURE ACUTE [None]
